FAERS Safety Report 9665889 (Version 2)
Quarter: 2013Q4

REPORT INFORMATION
  Report Type: Spontaneous
  Country: US (occurrence: US)
  Receive Date: 20131104
  Receipt Date: 20131122
  Transmission Date: 20140711
  Serious: Yes (Hospitalization)
  Sender: FDA-Public Use
  Company Number: US-BAXTER-2013BAX043312

PATIENT
  Age: 69 Year
  Sex: Male

DRUGS (8)
  1. DIANEAL LOW CALCIUM [Suspect]
     Indication: PERITONEAL DIALYSIS
     Route: 033
     Dates: start: 2011
  2. DIANEAL LOW CALCIUM [Suspect]
     Route: 033
     Dates: start: 20131009
  3. DIANEAL LOW CALCIUM [Suspect]
     Indication: PERITONEAL DIALYSIS
     Route: 033
     Dates: start: 2011
  4. DIANEAL LOW CALCIUM [Suspect]
     Route: 033
     Dates: start: 20131009
  5. DIANEAL LOW CALCIUM [Suspect]
     Indication: PERITONEAL DIALYSIS
     Route: 033
     Dates: start: 2011
  6. DIANEAL LOW CALCIUM [Suspect]
     Route: 033
     Dates: start: 20131009
  7. EXTRANEAL [Suspect]
     Indication: PERITONEAL DIALYSIS
     Route: 033
     Dates: start: 2011
  8. EXTRANEAL [Suspect]
     Route: 033
     Dates: start: 20131009

REACTIONS (3)
  - Peritonitis bacterial [Recovered/Resolved]
  - Device related infection [Unknown]
  - Procedural pain [Unknown]
